FAERS Safety Report 22071733 (Version 1)
Quarter: 2023Q1

REPORT INFORMATION
  Report Type: Report from Study
  Country: IL (occurrence: IL)
  Receive Date: 20230307
  Receipt Date: 20230307
  Transmission Date: 20230417
  Serious: Yes (Hospitalization)
  Sender: FDA-Public Use
  Company Number: IL-ABBVIE-4290448

PATIENT
  Age: 83 Year
  Sex: Female
  Weight: 63 kg

DRUGS (3)
  1. IBRUTINIB [Suspect]
     Active Substance: IBRUTINIB
     Indication: Richter^s syndrome
     Dosage: LAST DOSE PRIOR TO EVENT - 26-JAN-2023
     Route: 048
     Dates: start: 20220815, end: 20230127
  2. VENETOCLAX [Suspect]
     Active Substance: VENETOCLAX
     Indication: Richter^s syndrome
     Dosage: LAST DOSE PRIOR TO EVENT - 26-JAN-2023
     Dates: start: 20220905, end: 20230127
  3. OBINUTUZUMAB [Concomitant]
     Active Substance: OBINUTUZUMAB
     Indication: Richter^s syndrome
     Dates: start: 20220815, end: 20230109

REACTIONS (1)
  - Clostridium difficile colitis [Recovering/Resolving]

NARRATIVE: CASE EVENT DATE: 20230126
